FAERS Safety Report 4764967-4 (Version None)
Quarter: 2005Q3

REPORT INFORMATION
  Report Type: 
  Country: None (occurrence: None)
  Receive Date: 20050909
  Receipt Date: 20050901
  Transmission Date: 20060218
  Serious: Yes (Death)
  Sender: FDA-Public Use
  Company Number: US-ROCHE-416310

PATIENT
  Age: 63 Year
  Sex: Male
  Weight: 86.2 kg

DRUGS (3)
  1. PEGASYS [Suspect]
     Route: 058
     Dates: start: 20040615
  2. COPEGUS [Suspect]
     Dosage: AT 3AM AND AT 3PM.
     Route: 048
     Dates: start: 20040615
  3. BLOOD PRESSURE MEDICATION NOS [Concomitant]
     Indication: HYPERTENSION
     Dosage: FORM REPORTED AS PILL.
     Route: 048

REACTIONS (1)
  - HEPATIC NEOPLASM [None]
